FAERS Safety Report 20257679 (Version 1)
Quarter: 2021Q4

REPORT INFORMATION
  Report Type: Report from Study
  Country: KR (occurrence: KR)
  Receive Date: 20211230
  Receipt Date: 20211230
  Transmission Date: 20220303
  Serious: Yes (Hospitalization)
  Sender: FDA-Public Use
  Company Number: KR-TAKEDA-2021TUS051894

PATIENT
  Age: 59 Year
  Sex: Male

DRUGS (15)
  1. MOBOCERTINIB [Suspect]
     Active Substance: MOBOCERTINIB
     Indication: Non-small cell lung cancer
     Dosage: 160 MILLIGRAM
     Route: 048
     Dates: start: 20210510
  2. PEMETREXED [Suspect]
     Active Substance: PEMETREXED
     Indication: Non-small cell lung cancer
     Dosage: 500 MILLIGRAM/SQ. METER
     Route: 042
     Dates: start: 20201216
  3. CARBOPLATIN [Suspect]
     Active Substance: CARBOPLATIN
     Indication: Non-small cell lung cancer
     Dosage: UNK
     Route: 042
     Dates: start: 20201216
  4. CLINDAMYCIN [Concomitant]
     Active Substance: CLINDAMYCIN
     Indication: Rash
     Dosage: 30 MILLILITER
     Route: 061
     Dates: start: 20210524
  5. MINOCYCLINE [Concomitant]
     Active Substance: MINOCYCLINE HYDROCHLORIDE
     Indication: Rash
     Dosage: 50 MILLIGRAM
     Route: 048
     Dates: start: 20210524
  6. FEXOFENADINE [Concomitant]
     Active Substance: FEXOFENADINE HYDROCHLORIDE
     Indication: Rash
     Dosage: 120 MILLIGRAM
     Route: 048
     Dates: start: 20210524
  7. LEVOFLOXACIN [Concomitant]
     Active Substance: LEVOFLOXACIN
     Indication: Blepharitis
     Dosage: UNK
     Route: 047
     Dates: start: 20210602
  8. FLUOROMETHOLONE [Concomitant]
     Active Substance: FLUOROMETHOLONE
     Indication: Blepharitis
     Dosage: 5 MILLILITER
     Route: 047
     Dates: start: 20210602
  9. OFLOXACIN [Concomitant]
     Active Substance: OFLOXACIN
     Indication: Blepharitis
     Dosage: 3.5 GRAM
     Route: 047
     Dates: start: 20210602
  10. PROBIOTICS NOS [Concomitant]
     Active Substance: PROBIOTICS NOS
     Indication: Prophylaxis
     Dosage: UNK
     Route: 048
     Dates: start: 20210602
  11. Moxicle [Concomitant]
     Indication: Paronychia
     Dosage: UNK
     Route: 048
     Dates: start: 20210623
  12. LACTICARE [Concomitant]
     Indication: Rash
     Dosage: UNK
     Route: 061
     Dates: start: 20210623
  13. LOPERAMIDE [Concomitant]
     Active Substance: LOPERAMIDE
     Indication: Diarrhoea
     Dosage: 2 MILLIGRAM
     Route: 048
     Dates: start: 20210513, end: 20210826
  14. METOCLOPRAMIDE [Concomitant]
     Active Substance: METOCLOPRAMIDE
     Indication: Nausea
     Dosage: 5 MILLIGRAM
     Route: 048
     Dates: start: 20210805, end: 20210901
  15. ASTRAZENECA COVID-19 VACCINE [Concomitant]
     Active Substance: AZD-1222
     Indication: Prophylaxis
     Dosage: 0.5 MILLILITER
     Route: 058
     Dates: start: 20210809, end: 20210809

REACTIONS (1)
  - Optic neuritis [Recovered/Resolved]

NARRATIVE: CASE EVENT DATE: 20210816
